FAERS Safety Report 16073386 (Version 2)
Quarter: 2019Q2

REPORT INFORMATION
  Report Type: Report from Study
  Country: HN (occurrence: HN)
  Receive Date: 20190314
  Receipt Date: 20190619
  Transmission Date: 20190711
  Serious: Yes (Other)
  Sender: FDA-Public Use
  Company Number: HN-SA-2019SA069037

PATIENT
  Age: 66 Year
  Sex: Male

DRUGS (1)
  1. HYDROCHLOROTHIAZIDE/IRBESARTAN [Suspect]
     Active Substance: HYDROCHLOROTHIAZIDE\IRBESARTAN
     Indication: HYPERTENSION
     Dosage: 1/2 TABLET (300 MG OF IRBESARTAN + 12.5MG OF HYDROCHLOROTHIAZIDE, QD
     Route: 048
     Dates: start: 2017

REACTIONS (2)
  - Prostatic operation [Recovered/Resolved]
  - Off label use [Not Recovered/Not Resolved]

NARRATIVE: CASE EVENT DATE: 2017
